FAERS Safety Report 25413162 (Version 3)
Quarter: 2025Q3

REPORT INFORMATION
  Report Type: Spontaneous
  Country: US (occurrence: US)
  Receive Date: 20250609
  Receipt Date: 20250710
  Transmission Date: 20251021
  Serious: No
  Sender: PFIZER
  Company Number: US-PFIZER INC-202500111554

PATIENT
  Age: 7 Year
  Sex: Female

DRUGS (1)
  1. GENOTROPIN [Suspect]
     Active Substance: SOMATROPIN
     Dosage: 0.7 MG, DAILY
     Dates: start: 202505

REACTIONS (4)
  - Device breakage [Unknown]
  - Poor quality device used [Unknown]
  - Varicella [Unknown]
  - Skin disorder [Unknown]

NARRATIVE: CASE EVENT DATE: 20250501
